FAERS Safety Report 8575364 (Version 3)
Quarter: 2012Q4

REPORT INFORMATION
  Report Type: 
  Country: US (occurrence: US)
  Receive Date: 20120523
  Receipt Date: 20121109
  Transmission Date: 20130627
  Serious: Yes (Other)
  Sender: FDA-Public Use
  Company Number: US-BAYER-2012-049879

PATIENT
  Age: 28 Year
  Sex: Female
  Weight: 82 kg

DRUGS (8)
  1. YAZ [Suspect]
     Indication: ACNE
     Dosage: UNK
     Dates: start: 200802, end: 200903
  2. YAZ [Suspect]
     Indication: BIRTH CONTROL
  3. YASMIN [Suspect]
     Indication: CONTRACEPTION
  4. IBUPROFEN [Concomitant]
     Dosage: 800 mg, UNK
     Route: 048
     Dates: start: 20090104
  5. NIFEDICAL XL [Concomitant]
     Dosage: UNK
     Route: 048
     Dates: start: 20090107
  6. PRIMACARE [Concomitant]
     Dosage: UNK
     Route: 048
     Dates: start: 20090109
  7. VERAPAMIL [Concomitant]
     Dosage: 100 mg, UNK
     Route: 048
     Dates: start: 20090109
  8. PROCARDIA [Concomitant]

REACTIONS (5)
  - Cerebrovascular accident [Recovered/Resolved]
  - Injury [Recovered/Resolved]
  - Pain [Recovered/Resolved]
  - Anxiety [None]
  - Fear [None]
